FAERS Safety Report 13463808 (Version 1)
Quarter: 2017Q2

REPORT INFORMATION
  Report Type: Spontaneous
  Country: US (occurrence: US)
  Receive Date: 20170420
  Receipt Date: 20170420
  Transmission Date: 20170830
  Serious: Yes (Other)
  Sender: FDA-Public Use
  Company Number: US-ROCHE-663811

PATIENT
  Age: 23 Year
  Sex: Male
  Weight: 81.6 kg

DRUGS (2)
  1. ACCUTANE [Suspect]
     Active Substance: ISOTRETINOIN
     Indication: ACNE
     Dosage: RECEIVED FOR SIX MONTHS
     Route: 065
  2. ACCUTANE [Suspect]
     Active Substance: ISOTRETINOIN
     Route: 065
     Dates: start: 20020729, end: 200208

REACTIONS (4)
  - Inflammatory bowel disease [Unknown]
  - Aphthous ulcer [Recovering/Resolving]
  - Depression [Unknown]
  - Colitis ulcerative [Unknown]

NARRATIVE: CASE EVENT DATE: 20020817
